FAERS Safety Report 7802559-0 (Version None)
Quarter: 2011Q4

REPORT INFORMATION
  Report Type: 
  Country: None (occurrence: None)
  Receive Date: 20111007
  Receipt Date: 20110927
  Transmission Date: 20120403
  Serious: Yes (Other)
  Sender: FDA-Public Use
  Company Number: NL-AMGEN-NLDSP2011051160

PATIENT
  Age: 61 Year
  Sex: Male

DRUGS (3)
  1. MTX                                /00113801/ [Concomitant]
     Dosage: UNK
  2. FOLIC ACID [Concomitant]
     Dosage: UNK
  3. ENBREL [Suspect]
     Indication: RHEUMATOID ARTHRITIS
     Dosage: 50 MG, WEEKLY
     Dates: start: 20110810

REACTIONS (2)
  - RHEUMATOID ARTHRITIS [None]
  - PROSTATIC SPECIFIC ANTIGEN INCREASED [None]
